FAERS Safety Report 24930365 (Version 2)
Quarter: 2025Q1

REPORT INFORMATION
  Report Type: Spontaneous
  Country: IL (occurrence: IL)
  Receive Date: 20250205
  Receipt Date: 20250227
  Transmission Date: 20250409
  Serious: Yes (Death)
  Sender: AMERICAN REGENT
  Company Number: IL-AMERICAN REGENT INC-2025000529

PATIENT
  Age: 42 Year
  Sex: Female

DRUGS (3)
  1. VENOFER [Suspect]
     Active Substance: IRON SUCROSE
     Indication: Product used for unknown indication
     Route: 065
     Dates: start: 2021
  2. VENOFER [Suspect]
     Active Substance: IRON SUCROSE
     Route: 065
     Dates: start: 2022
  3. VENOFER [Suspect]
     Active Substance: IRON SUCROSE
     Route: 065

REACTIONS (3)
  - Death [Fatal]
  - Pain [Unknown]
  - Suspected product quality issue [Unknown]
